FAERS Safety Report 13644366 (Version 1)
Quarter: 2017Q2

REPORT INFORMATION
  Report Type: Spontaneous
  Country: US (occurrence: US)
  Receive Date: 20170612
  Receipt Date: 20170612
  Transmission Date: 20170830
  Serious: No
  Sender: FDA-Public Use
  Company Number: US-ROCHE-1037733

PATIENT
  Sex: Female

DRUGS (1)
  1. KLONOPIN [Suspect]
     Active Substance: CLONAZEPAM
     Indication: PRODUCT USED FOR UNKNOWN INDICATION
     Route: 065

REACTIONS (11)
  - Retinal tear [Unknown]
  - Cataract [Unknown]
  - Gingival pain [Unknown]
  - Vision blurred [Unknown]
  - Endodontic procedure [Unknown]
  - Toothache [Unknown]
  - Tooth fracture [Unknown]
  - Enamel anomaly [Unknown]
  - Visual impairment [Unknown]
  - Gingival recession [Unknown]
  - Dental caries [Unknown]
